FAERS Safety Report 7917064-0 (Version None)
Quarter: 2011Q4

REPORT INFORMATION
  Report Type: 
  Country: None (occurrence: None)
  Receive Date: 20111116
  Receipt Date: 20111111
  Transmission Date: 20120403
  Serious: Yes (Other)
  Sender: FDA-Public Use
  Company Number: US-PFIZER INC-2011276916

PATIENT
  Sex: Female
  Weight: 68.027 kg

DRUGS (4)
  1. ENBREL [Concomitant]
     Indication: ARTHRITIS
     Dosage: UNK
  2. EFFEXOR XR [Suspect]
     Indication: ANXIETY DISORDER
     Dosage: 150 MG, 1X/DAY
     Route: 048
     Dates: start: 20090101, end: 20110601
  3. SYNTHROID [Concomitant]
     Indication: HYPOTHYROIDISM
     Dosage: UNK
  4. TAPENTADOL [Concomitant]
     Indication: ARTHRALGIA
     Dosage: UNK

REACTIONS (4)
  - GAIT DISTURBANCE [None]
  - ARTHROPATHY [None]
  - ARTHRALGIA [None]
  - CIRCUMSTANCE OR INFORMATION CAPABLE OF LEADING TO MEDICATION ERROR [None]
